FAERS Safety Report 7773881-1 (Version None)
Quarter: 2011Q3

REPORT INFORMATION
  Report Type: 
  Country: None (occurrence: None)
  Receive Date: 20110923
  Receipt Date: 20110914
  Transmission Date: 20111222
  Serious: Yes (Hospitalization)
  Sender: FDA-Public Use
  Company Number: US-GENZYME-CAMP-1001795

PATIENT
  Sex: Female
  Weight: 97.052 kg

DRUGS (18)
  1. RITALIN [Concomitant]
     Indication: FATIGUE
     Dosage: 10 MG, BID
     Route: 048
     Dates: start: 20110707
  2. ASCORBIC ACID [Concomitant]
     Indication: PROPHYLAXIS
     Dosage: 1000 MG, QD
     Route: 048
     Dates: start: 20090218
  3. MULTI-VITAMIN [Concomitant]
     Indication: PROPHYLAXIS
     Dosage: 1 TAB, QD
     Route: 048
     Dates: start: 20090218
  4. VICODIN ES [Concomitant]
     Indication: HERPES ZOSTER
     Dosage: 1 TAB, TID
     Route: 048
     Dates: start: 20110309
  5. AMANTADINE HCL [Concomitant]
     Indication: FATIGUE
     Dosage: 100 MG, QD
     Route: 048
     Dates: start: 20110617
  6. ALEMTUZUMAB [Suspect]
     Dosage: 12 MG, QDX3
     Route: 042
     Dates: start: 20100316, end: 20100318
  7. VITAMIN B12 NOS [Concomitant]
     Indication: PROPHYLAXIS
     Dosage: 1000 MG, QD
     Route: 048
     Dates: start: 20090218
  8. PROZAC [Concomitant]
     Indication: DEPRESSION
     Dosage: 60 MG, QD
     Route: 048
     Dates: start: 20110209
  9. NICOTINE [Concomitant]
     Indication: PROPHYLAXIS
     Dosage: 21 MG, QD
     Route: 062
     Dates: start: 20110729, end: 20110729
  10. VITAMIN D [Concomitant]
     Indication: PROPHYLAXIS
     Dosage: 1000 MG, QD
     Route: 048
     Dates: start: 20090218
  11. TRAZODONE HYDROCHLORIDE [Concomitant]
     Indication: INSOMNIA
     Dosage: 100 MG, QD
     Route: 048
     Dates: start: 20090916
  12. ALEMTUZUMAB [Suspect]
     Indication: MULTIPLE SCLEROSIS
     Dosage: 12 MG, QDX5
     Route: 042
     Dates: start: 20090316, end: 20090320
  13. TYLENOL-500 [Concomitant]
     Indication: HEADACHE
     Dosage: 1000 MG, PRN
     Route: 048
     Dates: start: 19700101
  14. TYLENOL-500 [Concomitant]
     Indication: BACK PAIN
     Dosage: 1000 MG, PRN
     Route: 048
     Dates: start: 20100225
  15. PROZAC [Concomitant]
     Indication: ANXIETY
  16. TYLENOL PM [Concomitant]
     Indication: INSOMNIA
     Dosage: 2 CAPS, UNK
     Route: 048
     Dates: start: 20110621
  17. CALCIUM CARBONATE [Concomitant]
     Indication: PROPHYLAXIS
     Dosage: 600 MG, QD
     Route: 048
     Dates: start: 20090218
  18. LOPERAMIDE HCL [Concomitant]
     Indication: DIARRHOEA
     Dosage: 2 MG, PRN
     Route: 048
     Dates: start: 20081001

REACTIONS (1)
  - DEEP VEIN THROMBOSIS [None]
